FAERS Safety Report 4778425-4 (Version None)
Quarter: 2005Q3

REPORT INFORMATION
  Report Type: 
  Country: None (occurrence: None)
  Receive Date: 20050926
  Receipt Date: 20050921
  Transmission Date: 20060218
  Serious: Yes (Hospitalization)
  Sender: FDA-Public Use
  Company Number: US-JNJFOC-20050605646

PATIENT
  Age: 62 Year
  Sex: Male

DRUGS (7)
  1. PANCREASE MT16 [Suspect]
     Indication: PANCREATITIS
     Dosage: TAKE SIX TABLETS WITH EACH MEALS.
     Route: 048
  2. NEURONTIN [Concomitant]
  3. PROZAC [Concomitant]
  4. DOXEPIN HCL [Concomitant]
  5. LOTENSIN [Concomitant]
  6. LANTUS [Concomitant]
  7. CARDIZEM [Concomitant]

REACTIONS (1)
  - BILE DUCT OBSTRUCTION [None]
